FAERS Safety Report 16766520 (Version 1)
Quarter: 2019Q4

REPORT INFORMATION
  Report Type: Spontaneous
  Country: US (occurrence: US)
  Receive Date: 20190831
  Receipt Date: 20190831
  Transmission Date: 20200122
  Serious: Yes (Other)
  Sender: FDA-Public Use
  Company Number: None

PATIENT
  Age: 47 Year
  Sex: Female
  Weight: 48.15 kg

DRUGS (1)
  1. CIPROFLOXACIN. [Suspect]
     Active Substance: CIPROFLOXACIN
     Indication: URINARY TRACT INFECTION
     Dosage: ?          QUANTITY:6 TABLET(S);?
     Route: 048
     Dates: start: 20190828, end: 20190830

REACTIONS (6)
  - Pain [None]
  - Musculoskeletal stiffness [None]
  - Tendon disorder [None]
  - Pain in extremity [None]
  - Musculoskeletal pain [None]
  - Seizure [None]

NARRATIVE: CASE EVENT DATE: 20190829
